FAERS Safety Report 6161695-8 (Version None)
Quarter: 2009Q2

REPORT INFORMATION
  Report Type: 
  Country: None (occurrence: None)
  Receive Date: 20090421
  Receipt Date: 20090409
  Transmission Date: 20091009
  Serious: Yes (Other)
  Sender: FDA-Public Use
  Company Number: GB-TEVA-191238ISR

PATIENT
  Age: 66 Year
  Sex: Female

DRUGS (3)
  1. CISPLATIN [Suspect]
     Dates: start: 20090301, end: 20090301
  2. EPIRUBICIN [Suspect]
     Dates: start: 20090301, end: 20090301
  3. CAPECITABINE [Suspect]
     Dates: start: 20090301, end: 20090301

REACTIONS (1)
  - CHEST PAIN [None]
